FAERS Safety Report 20141338 (Version 1)
Quarter: 2021Q4

REPORT INFORMATION
  Report Type: Spontaneous
  Country: US (occurrence: US)
  Receive Date: 20211202
  Receipt Date: 20211202
  Transmission Date: 20220303
  Serious: No
  Sender: FDA-Public Use
  Company Number: US-LANNETT COMPANY, INC.-US-2021LAN000015

PATIENT
  Sex: Female

DRUGS (1)
  1. DIETHYLPROPION HYDROCHLORIDE [Suspect]
     Active Substance: DIETHYLPROPION HYDROCHLORIDE
     Indication: Obesity
     Dosage: 75 MG, QD
     Route: 048

REACTIONS (1)
  - Drug ineffective [Unknown]
